FAERS Safety Report 5372254-9 (Version None)
Quarter: 2007Q2

REPORT INFORMATION
  Report Type: 
  Country: None (occurrence: None)
  Receive Date: 20070618
  Receipt Date: 20070430
  Transmission Date: 20071010
  Serious: Yes (Other)
  Sender: FDA-Public Use
  Company Number: 07-035

PATIENT
  Age: 66 Year
  Sex: Male
  Weight: 87.5442 kg

DRUGS (3)
  1. ALEVE [Suspect]
     Indication: ARTHRALGIA
     Dosage: 220 MG, DAILY, ORAL
     Route: 048
     Dates: start: 20070417, end: 20070417
  2. ACIPHEX [Concomitant]
  3. ENTERIC COATED CVS BRAND ASPIRIN [Concomitant]

REACTIONS (1)
  - HYPERSENSITIVITY [None]
